FAERS Safety Report 10155530 (Version 3)
Quarter: 2014Q2

REPORT INFORMATION
  Report Type: Spontaneous
  Country: US (occurrence: US)
  Receive Date: 20140506
  Receipt Date: 20140625
  Transmission Date: 20141212
  Serious: No
  Sender: FDA-Public Use
  Company Number: US-PFIZER INC-2014120702

PATIENT
  Age: 68 Year
  Sex: Female
  Weight: 71.2 kg

DRUGS (2)
  1. ADVIL PM [Suspect]
     Indication: INSOMNIA
     Dosage: UNK, ONCE
     Dates: start: 20140428, end: 20140428
  2. ADVIL PM [Suspect]
     Indication: PAIN

REACTIONS (6)
  - Dizziness [Recovered/Resolved]
  - Fatigue [Not Recovered/Not Resolved]
  - Somnolence [Not Recovered/Not Resolved]
  - Headache [Unknown]
  - Nausea [Unknown]
  - Insomnia [Unknown]
